FAERS Safety Report 10018272 (Version 1)
Quarter: 2014Q1

REPORT INFORMATION
  Report Type: Spontaneous
  Country: US (occurrence: US)
  Receive Date: 20140318
  Receipt Date: 20140318
  Transmission Date: 20141002
  Serious: No
  Sender: FDA-Public Use
  Company Number: US-BRISTOL-MYERS SQUIBB COMPANY-19829167

PATIENT
  Age: 42 Year
  Sex: Female

DRUGS (1)
  1. ERBITUX [Suspect]
     Indication: ANAL CANCER
     Dosage: LOADING DOSE OF 400 MG, AND NOW GET 500 MG EVERY 2 WEEKS.

REACTIONS (3)
  - Hypotrichosis [Unknown]
  - Dry skin [Unknown]
  - Dry eye [Unknown]
